FAERS Safety Report 7429730-4 (Version None)
Quarter: 2011Q2

REPORT INFORMATION
  Report Type: 
  Country: None (occurrence: None)
  Receive Date: 20110421
  Receipt Date: 20110411
  Transmission Date: 20111010
  Serious: Yes (Hospitalization)
  Sender: FDA-Public Use
  Company Number: FR-PFIZER INC-2011078791

PATIENT
  Age: 39 Year
  Sex: Female

DRUGS (9)
  1. CONTRAMAL [Suspect]
     Indication: PAIN
     Dosage: UNK
     Route: 048
     Dates: start: 20110201
  2. COAPROVEL [Concomitant]
  3. ZANIDIP [Concomitant]
  4. OXYBUTYNIN [Concomitant]
  5. CIMETIDINE [Concomitant]
  6. UVEDOSE [Concomitant]
  7. PROZAC [Concomitant]
  8. XANAX [Suspect]
     Dosage: 0.25 MG, 1X/DAY
     Route: 048
  9. LASIX [Concomitant]

REACTIONS (4)
  - HALLUCINATION, AUDITORY [None]
  - ABNORMAL BEHAVIOUR [None]
  - HALLUCINATION, VISUAL [None]
  - WITHDRAWAL SYNDROME [None]
